FAERS Safety Report 7997553-3 (Version None)
Quarter: 2011Q4

REPORT INFORMATION
  Report Type: 
  Country: None (occurrence: None)
  Receive Date: 20111221
  Receipt Date: 20111215
  Transmission Date: 20120403
  Serious: Yes (Hospitalization)
  Sender: FDA-Public Use
  Company Number: DE-TEVA-313679GER

PATIENT
  Age: 59 Year
  Sex: Female

DRUGS (3)
  1. CLARITHROMYCIN [Suspect]
     Indication: BRONCHITIS
     Dosage: 500 MILLIGRAM;
     Route: 048
     Dates: start: 20110314, end: 20110324
  2. AMBROXOL [Concomitant]
     Indication: BRONCHITIS
     Dosage: 180 MILLIGRAM;
     Route: 048
     Dates: start: 20110314
  3. METOPROLOL TARTRATE [Concomitant]
     Indication: HYPERTENSION
     Dosage: 50 MILLIGRAM;
     Route: 048

REACTIONS (1)
  - DIPLOPIA [None]
